FAERS Safety Report 21260796 (Version 1)
Quarter: 2022Q3

REPORT INFORMATION
  Report Type: Spontaneous
  Country: US (occurrence: US)
  Receive Date: 20220826
  Receipt Date: 20220826
  Transmission Date: 20221027
  Serious: Yes (Other)
  Sender: FDA-Public Use
  Company Number: US-ELI_LILLY_AND_COMPANY-US202208007116

PATIENT
  Age: 68 Year
  Sex: Male
  Weight: 129 kg

DRUGS (1)
  1. BEBTELOVIMAB [Suspect]
     Active Substance: BEBTELOVIMAB
     Indication: COVID-19
     Dosage: 175 MG, SINGLE
     Route: 042
     Dates: start: 20220812, end: 20220812

REACTIONS (2)
  - Hypotension [Unknown]
  - Urticaria [Unknown]

NARRATIVE: CASE EVENT DATE: 20220812
